FAERS Safety Report 17639638 (Version 3)
Quarter: 2020Q2

REPORT INFORMATION
  Report Type: Spontaneous
  Country: AU (occurrence: AU)
  Receive Date: 20200407
  Receipt Date: 20200515
  Transmission Date: 20200713
  Serious: Yes (Other)
  Sender: FDA-Public Use
  Company Number: AU-MYLANLABS-2020M1035562

PATIENT
  Sex: Female

DRUGS (1)
  1. ASMOL (SALBUTAMOL) [Suspect]
     Active Substance: ALBUTEROL
     Indication: RESPIRATION ABNORMAL
     Dosage: UNK

REACTIONS (4)
  - Product dose omission [Unknown]
  - Asthma [Unknown]
  - Product cleaning inadequate [Unknown]
  - Device failure [Unknown]
